FAERS Safety Report 9536408 (Version 1)
Quarter: 2013Q3

REPORT INFORMATION
  Report Type: Spontaneous
  Country: US (occurrence: None)
  Receive Date: 20130917
  Receipt Date: 20130917
  Transmission Date: 20140515
  Serious: No
  Sender: FDA-Public Use
  Company Number: None

PATIENT
  Age: 54 Year
  Sex: Female

DRUGS (1)
  1. FENTANYL [Suspect]
     Indication: PAIN
     Dosage: 2 PATCHES APPLIED AS MEDICATED PATCH TO SKIN
     Route: 061
     Dates: start: 20130914, end: 20130916

REACTIONS (5)
  - Pain [None]
  - Condition aggravated [None]
  - Crying [None]
  - Drug ineffective [None]
  - Product substitution issue [None]
